FAERS Safety Report 6774495-2 (Version None)
Quarter: 2010Q2

REPORT INFORMATION
  Report Type: 
  Country: None (occurrence: None)
  Receive Date: 20100617
  Receipt Date: 20100607
  Transmission Date: 20101027
  Serious: Yes (Other)
  Sender: FDA-Public Use
  Company Number: PHHY2010FR14049

PATIENT
  Sex: Male
  Weight: 72 kg

DRUGS (7)
  1. RASILEZ [Suspect]
     Dosage: 150 MG, UNK
     Dates: start: 20100305
  2. TAHOR [Concomitant]
  3. PERMIXON [Concomitant]
  4. LERCAN [Concomitant]
  5. NEBILOX [Concomitant]
  6. KARDEGIC [Concomitant]
  7. HAVLANE [Concomitant]

REACTIONS (14)
  - ABDOMINAL PAIN [None]
  - ARTHRALGIA [None]
  - GASTROINTESTINAL DISORDER [None]
  - HYPERAEMIA [None]
  - LEUKOCYTOCLASTIC VASCULITIS [None]
  - LEUKOCYTOSIS [None]
  - MUSCLE INJURY [None]
  - OEDEMA PERIPHERAL [None]
  - PROTEINURIA [None]
  - PRURITUS [None]
  - PURPURA [None]
  - RED BLOOD CELLS URINE [None]
  - RENAL INJURY [None]
  - VASCULITIS [None]
